FAERS Safety Report 17273608 (Version 1)
Quarter: 2020Q1

REPORT INFORMATION
  Report Type: Spontaneous
  Country: CN (occurrence: CN)
  Receive Date: 20200115
  Receipt Date: 20200115
  Transmission Date: 20200409
  Serious: Yes (Hospitalization, Other)
  Sender: FDA-Public Use
  Company Number: CN-PFIZER INC-2020014444

PATIENT
  Age: 77 Year
  Sex: Female
  Weight: 41.5 kg

DRUGS (8)
  1. CELEBREX [Suspect]
     Active Substance: CELECOXIB
     Dosage: 0.2 G, 1X/DAY
     Route: 048
     Dates: start: 20191213, end: 20191213
  2. SARIDON [CAFFEINE;PARACETAMOL;PROPYPHENAZONE] [Suspect]
     Active Substance: ACETAMINOPHEN\CAFFEINE\PROPYPHENAZONE
     Dosage: 1 DF, 1X/DAY
     Route: 048
     Dates: start: 20191214, end: 20191214
  3. SARIDON [CAFFEINE;PARACETAMOL;PROPYPHENAZONE] [Suspect]
     Active Substance: ACETAMINOPHEN\CAFFEINE\PROPYPHENAZONE
     Indication: DIVERTICULUM INTESTINAL
     Dosage: 1 DF, 1X/DAY
     Route: 048
     Dates: start: 20191211, end: 20191212
  4. TYLENOL [ACETAMINOPHEN\CHLORPHENIRAMINE MALEATE\DEXTROMETHORPHAN\PSEUDOEPHEDRINE] [Suspect]
     Active Substance: ACETAMINOPHEN\CHLORPHENIRAMINE MALEATE\DEXTROMETHORPHAN\PSEUDOEPHEDRINE
     Indication: DIVERTICULUM INTESTINAL
     Dosage: 1 DF, 4X/DAY
     Route: 048
     Dates: start: 20191213, end: 20200115
  5. ROCEPHIN [Concomitant]
     Active Substance: CEFTRIAXONE SODIUM
     Indication: DIVERTICULUM INTESTINAL
     Dosage: 2 G, 1X/DAY
     Route: 041
     Dates: start: 20191211, end: 20191213
  6. CELEBREX [Suspect]
     Active Substance: CELECOXIB
     Dosage: 0.2 G, 1X/DAY
     Route: 048
     Dates: start: 20191210, end: 20191210
  7. CELEBREX [Suspect]
     Active Substance: CELECOXIB
     Dosage: 0.2 G, 1X/DAY
     Route: 048
     Dates: start: 20191213, end: 20191213
  8. CELEBREX [Suspect]
     Active Substance: CELECOXIB
     Indication: DIVERTICULUM INTESTINAL
     Dosage: 0.2 G, 1X/DAY
     Route: 048
     Dates: start: 20191210, end: 20191210

REACTIONS (9)
  - Erythema [Unknown]
  - Malaise [Unknown]
  - Asthenia [Unknown]
  - Alanine aminotransferase increased [Unknown]
  - White blood cell count decreased [Unknown]
  - C-reactive protein increased [Unknown]
  - Myalgia [Unknown]
  - Rash [Unknown]
  - Aspartate aminotransferase increased [Unknown]

NARRATIVE: CASE EVENT DATE: 20191211
